FAERS Safety Report 11643791 (Version 1)
Quarter: 2015Q4

REPORT INFORMATION
  Report Type: Spontaneous
  Country: US (occurrence: US)
  Receive Date: 20151020
  Receipt Date: 20151020
  Transmission Date: 20160304
  Serious: No
  Sender: FDA-Public Use
  Company Number: US-BIOGENIDEC-2015BI140800

PATIENT
  Age: 50 Year
  Sex: Male

DRUGS (1)
  1. TECFIDERA [Suspect]
     Active Substance: DIMETHYL FUMARATE
     Indication: MULTIPLE SCLEROSIS
     Route: 048
     Dates: start: 20141015, end: 20151015

REACTIONS (5)
  - Disorientation [Recovered/Resolved]
  - Paraesthesia [Unknown]
  - Flushing [Recovered/Resolved]
  - Stress [Unknown]
  - Feeling hot [Unknown]

NARRATIVE: CASE EVENT DATE: 20151001
